FAERS Safety Report 10011639 (Version 10)
Quarter: 2016Q1

REPORT INFORMATION
  Report Type: Report from Study
  Country: CA (occurrence: CA)
  Receive Date: 20140314
  Receipt Date: 20160115
  Transmission Date: 20160525
  Serious: Yes (Other)
  Sender: FDA-Public Use
  Company Number: PHHY2012CA040051

PATIENT
  Age: 44 Year
  Sex: Female

DRUGS (4)
  1. SANDOSTATIN LAR DEPOT [Suspect]
     Active Substance: OCTREOTIDE ACETATE
     Dosage: 30 MG, QMO (EVERY 4 WEEKS/ONCE A MONTH)
     Route: 030
  2. SANDOSTATIN LAR DEPOT [Suspect]
     Active Substance: OCTREOTIDE ACETATE
     Indication: NEUROENDOCRINE TUMOUR
     Dosage: 30 MG, QMO (EVERY 4 WEEKS)
     Route: 030
     Dates: start: 20120508
  3. SANDOSTATIN [Suspect]
     Active Substance: OCTREOTIDE ACETATE
     Indication: NEUROENDOCRINE TUMOUR
     Dosage: UG, ONCE/SINGLE (TEST DOSE)
     Route: 058
     Dates: start: 20120501, end: 20120501
  4. SANDOSTATIN LAR DEPOT [Suspect]
     Active Substance: OCTREOTIDE ACETATE
     Dosage: 20 MG, QMO (EVERY 4 WEEKS)
     Route: 030

REACTIONS (12)
  - Scar [Unknown]
  - Hepatic neoplasm [Unknown]
  - Blood pressure increased [Unknown]
  - Pancreatic disorder [Unknown]
  - Palmar erythema [Unknown]
  - Stress [Unknown]
  - Pyogenic granuloma [Recovering/Resolving]
  - Post procedural discharge [Unknown]
  - Ovarian disorder [Unknown]
  - Post procedural complication [Unknown]
  - Post procedural swelling [Unknown]
  - Anxiety [Unknown]

NARRATIVE: CASE EVENT DATE: 2015
